FAERS Safety Report 9870945 (Version 1)
Quarter: 2014Q1

REPORT INFORMATION
  Report Type: Spontaneous
  Country: GB (occurrence: None)
  Receive Date: 20140203
  Receipt Date: 20140203
  Transmission Date: 20141002
  Serious: Yes (Disabling, Other)
  Sender: FDA-Public Use
  Company Number: CL-550-2014

PATIENT
  Age: 83 Year
  Sex: Male
  Weight: 72 kg

DRUGS (5)
  1. METRONIDAZOLE [Suspect]
     Indication: TOOTH ABSCESS
     Route: 048
     Dates: start: 20140106, end: 20140112
  2. AMLODIPINE [Concomitant]
  3. CAPTOPRIL [Concomitant]
  4. SIMVASTATIN [Concomitant]
  5. TAMSULOSIN  HYDROCHLORIDE [Concomitant]

REACTIONS (3)
  - Arthralgia [None]
  - Joint swelling [None]
  - Gait disturbance [None]
